FAERS Safety Report 24986428 (Version 1)
Quarter: 2025Q1

REPORT INFORMATION
  Report Type: Spontaneous
  Country: US (occurrence: None)
  Receive Date: 20250218
  Receipt Date: 20250218
  Transmission Date: 20250408
  Serious: No
  Sender: FDA-CTU
  Company Number: None

PATIENT
  Age: 59 Year
  Sex: Male
  Weight: 85.5 kg

DRUGS (1)
  1. XIAFLEX [Suspect]
     Active Substance: COLLAGENASE CLOSTRIDIUM HISTOLYTICUM
     Indication: Peyronie^s disease
     Route: 058
     Dates: start: 20250114, end: 20250121

REACTIONS (5)
  - Testicular swelling [None]
  - Penile swelling [None]
  - Swelling [None]
  - Genital erythema [None]
  - Genital pain [None]

NARRATIVE: CASE EVENT DATE: 20250114
